FAERS Safety Report 8860442 (Version 3)
Quarter: 2013Q1

REPORT INFORMATION
  Report Type: Spontaneous
  Country: US (occurrence: US)
  Receive Date: 20121025
  Receipt Date: 20130207
  Transmission Date: 20140127
  Serious: Yes (Other)
  Sender: FDA-Public Use
  Company Number: US-JNJFOC-20121009475

PATIENT
  Sex: Female

DRUGS (4)
  1. NUCYNTA [Suspect]
     Indication: BACK PAIN
     Route: 048
     Dates: start: 20120717, end: 20120909
  2. NUCYNTA [Suspect]
     Indication: BACK PAIN
     Route: 048
     Dates: start: 20120720, end: 20120921
  3. AUGMENTIN [Concomitant]
     Indication: UPPER RESPIRATORY TRACT INFECTION
     Route: 065
  4. HYDROCODONE [Concomitant]
     Indication: BACK PAIN
     Route: 065

REACTIONS (3)
  - Drug diversion [Unknown]
  - Drug dependence [Unknown]
  - Drug ineffective [Unknown]
